FAERS Safety Report 14482157 (Version 3)
Quarter: 2018Q3

REPORT INFORMATION
  Report Type: Report from Study
  Country: US (occurrence: US)
  Receive Date: 20180202
  Receipt Date: 20180820
  Transmission Date: 20181010
  Serious: Yes (Hospitalization)
  Sender: FDA-Public Use
  Company Number: US-ACTELION-A-US2018-166835

PATIENT
  Age: 61 Year
  Sex: Female

DRUGS (27)
  1. VITAMIN B COMPLEX/B12 [Concomitant]
  2. OMEPRAZOLE. [Concomitant]
     Active Substance: OMEPRAZOLE
  3. LIDOCAINE. [Concomitant]
     Active Substance: LIDOCAINE
  4. METOCLOPRAM [Concomitant]
     Active Substance: METOCLOPRAMIDE
  5. NYSTATIN. [Concomitant]
     Active Substance: NYSTATIN
  6. TEMAZEPAM. [Concomitant]
     Active Substance: TEMAZEPAM
  7. LOVENOX [Concomitant]
     Active Substance: ENOXAPARIN SODIUM
  8. FLUTICASONE. [Concomitant]
     Active Substance: FLUTICASONE
  9. FUROSEMIDE. [Concomitant]
     Active Substance: FUROSEMIDE
  10. LEVOTHYROXIN [Concomitant]
     Active Substance: LEVOTHYROXINE
  11. LIOTHYRONINE [Concomitant]
     Active Substance: LIOTHYRONINE
  12. PILOCARPINE. [Concomitant]
     Active Substance: PILOCARPINE
  13. PROBIOTIC [Concomitant]
     Active Substance: PROBIOTICS NOS
  14. SPIRONOLACTONE. [Concomitant]
     Active Substance: SPIRONOLACTONE
  15. OMEGA 3 [Concomitant]
     Active Substance: OMEGA-3 FATTY ACIDS
  16. REMODULIN [Suspect]
     Active Substance: TREPROSTINIL
     Indication: PRODUCT USED FOR UNKNOWN INDICATION
     Dosage: 44 NG/KG, PER MIN
     Route: 065
  17. ASPIRIN. [Concomitant]
     Active Substance: ASPIRIN
  18. DULOXETINE. [Concomitant]
     Active Substance: DULOXETINE
  19. MAGNESIUM OXIDE. [Concomitant]
     Active Substance: MAGNESIUM OXIDE
  20. VITAMIN D3 [Concomitant]
     Active Substance: CHOLECALCIFEROL
  21. OPSUMIT [Suspect]
     Active Substance: MACITENTAN
     Indication: PULMONARY ARTERIAL HYPERTENSION
     Dosage: 10 MG, QD
     Route: 048
     Dates: start: 20160420
  22. AMOXICILLIN AND CLAVULANATE POTASSIUM [Concomitant]
     Active Substance: AMOXICILLIN\CLAVULANATE POTASSIUM
  23. POTASSIUM CHLORIDE. [Concomitant]
     Active Substance: POTASSIUM CHLORIDE
  24. SILDENAFIL. [Concomitant]
     Active Substance: SILDENAFIL
  25. DOK [Concomitant]
     Active Substance: DOCUSATE SODIUM
  26. FISH OIL [Concomitant]
     Active Substance: FISH OIL
  27. FLUCONAZOLE. [Concomitant]
     Active Substance: FLUCONAZOLE

REACTIONS (5)
  - Vomiting [Unknown]
  - Gallbladder operation [Not Recovered/Not Resolved]
  - Cholelithiasis [Unknown]
  - Nausea [Unknown]
  - Dyspnoea [Unknown]

NARRATIVE: CASE EVENT DATE: 201801
